FAERS Safety Report 21143098 (Version 1)
Quarter: 2022Q3

REPORT INFORMATION
  Report Type: Spontaneous
  Country: US (occurrence: US)
  Receive Date: 20220728
  Receipt Date: 20220728
  Transmission Date: 20221027
  Serious: Yes (Hospitalization)
  Sender: FDA-Public Use
  Company Number: US-TEVA-2022-US-2059502

PATIENT
  Age: 65 Year
  Sex: Male

DRUGS (2)
  1. SORIATANE [Suspect]
     Active Substance: ACITRETIN
     Indication: Prophylaxis
     Dosage: 25 MILLIGRAM DAILY;
     Route: 048
     Dates: start: 2018
  2. SORIATANE [Suspect]
     Active Substance: ACITRETIN
     Indication: Subacute cutaneous lupus erythematosus

REACTIONS (1)
  - Spinal operation [Unknown]

NARRATIVE: CASE EVENT DATE: 20190501
